FAERS Safety Report 18296957 (Version 1)
Quarter: 2020Q3

REPORT INFORMATION
  Report Type: Spontaneous
  Country: MC (occurrence: MC)
  Receive Date: 20200922
  Receipt Date: 20200922
  Transmission Date: 20201103
  Serious: Yes (Other)
  Sender: FDA-Public Use
  Company Number: MC-JNJFOC-20200922092

PATIENT
  Age: 46 Year
  Sex: Female
  Weight: 42 kg

DRUGS (6)
  1. OLANZAPINE. [Concomitant]
     Active Substance: OLANZAPINE
  2. SPRAVATO [Suspect]
     Active Substance: ESKETAMINE
     Indication: DEPRESSION
  3. DIAZEPAM. [Concomitant]
     Active Substance: DIAZEPAM
  4. PROPRANOLOL [Concomitant]
     Active Substance: PROPRANOLOL HYDROCHLORIDE
  5. SEROPLEX [Concomitant]
     Active Substance: ESCITALOPRAM OXALATE
  6. ZOPLICONE [Concomitant]
     Active Substance: ZOPICLONE

REACTIONS (2)
  - Oxygen saturation abnormal [Unknown]
  - Disturbance in attention [Unknown]

NARRATIVE: CASE EVENT DATE: 20200909
